FAERS Safety Report 9409818 (Version 3)
Quarter: 2013Q4

REPORT INFORMATION
  Report Type: Spontaneous
  Country: GB (occurrence: GB)
  Receive Date: 20130719
  Receipt Date: 20131003
  Transmission Date: 20140711
  Serious: Yes (Death, Hospitalization, Other)
  Sender: FDA-Public Use
  Company Number: US-ASTELLAS-2013US007626

PATIENT
  Age: 62 Year
  Sex: Female

DRUGS (2)
  1. TARCEVA [Suspect]
     Indication: NON-SMALL CELL LUNG CANCER
     Dosage: 100 MG, UID/QD
     Route: 065
     Dates: start: 20120913, end: 201305
  2. TARCEVA [Suspect]
     Dosage: UNK
     Route: 065
     Dates: start: 201305, end: 201306

REACTIONS (7)
  - Incorrect dose administered [Unknown]
  - Neurological symptom [Unknown]
  - Visual impairment [Unknown]
  - Headache [Fatal]
  - Vomiting [Fatal]
  - Apraxia [Fatal]
  - Skin toxicity [Unknown]
